FAERS Safety Report 9596593 (Version 2)
Quarter: 2013Q4

REPORT INFORMATION
  Report Type: Spontaneous
  Country: FR (occurrence: FR)
  Receive Date: 20131004
  Receipt Date: 20131004
  Transmission Date: 20140711
  Serious: Yes (Hospitalization, Disabling)
  Sender: FDA-Public Use
  Company Number: FR-SA-A02200900128

PATIENT
  Age: 68 Year
  Sex: Male

DRUGS (13)
  1. CORDARONE [Suspect]
     Indication: ACUTE PULMONARY OEDEMA
     Dosage: UNIT DOSE: 200 MG
     Route: 048
     Dates: start: 20060117, end: 20081030
  2. EVOLTRA [Suspect]
     Indication: PRODUCT USED FOR UNKNOWN INDICATION
     Dosage: UNIT DOSE: 1 MG/ML?STOP DATE: 2008
     Route: 042
     Dates: start: 20080306
  3. EVOLTRA [Suspect]
     Indication: PRODUCT USED FOR UNKNOWN INDICATION
     Dosage: UNIT DOSE: 1 MG/ML
     Route: 042
     Dates: start: 20080824, end: 20080830
  4. ARACYTINE [Suspect]
     Indication: PRODUCT USED FOR UNKNOWN INDICATION
     Route: 042
     Dates: start: 20060117, end: 20080824
  5. ARACYTINE [Suspect]
     Indication: PRODUCT USED FOR UNKNOWN INDICATION
     Route: 042
     Dates: start: 20081013, end: 20081016
  6. FLUDARA [Concomitant]
     Indication: PRODUCT USED FOR UNKNOWN INDICATION
     Dosage: UNIT DOSE: 50 MG
     Route: 042
     Dates: start: 20080904, end: 20080908
  7. VEPESIDE [Concomitant]
     Indication: PRODUCT USED FOR UNKNOWN INDICATION
     Route: 042
     Dates: start: 20060503, end: 20060507
  8. METHOTREXATE [Concomitant]
     Indication: PRODUCT USED FOR UNKNOWN INDICATION
     Dosage: UNIT DOSE: 2.5 MG
     Route: 048
     Dates: start: 200704, end: 200708
  9. TAHOR [Concomitant]
     Indication: PRODUCT USED FOR UNKNOWN INDICATION
     Dosage: UNIT DOSE: 10 MG
     Route: 048
  10. RENITEC /USA/ [Concomitant]
     Indication: PRODUCT USED FOR UNKNOWN INDICATION
     Dosage: UNIT DOSE: 20 MG
     Route: 048
     Dates: start: 20060117, end: 20081030
  11. PURINETHOL [Concomitant]
     Indication: PRODUCT USED FOR UNKNOWN INDICATION
     Dosage: UNIT DOSE: 50 MG
     Route: 048
     Dates: start: 200704, end: 200708
  12. PURINETHOL [Concomitant]
     Indication: PRODUCT USED FOR UNKNOWN INDICATION
     Dosage: UNIT DOSE: 50 MG
     Route: 048
     Dates: start: 20081022, end: 20081031
  13. PURINETHOL [Concomitant]
     Indication: PRODUCT USED FOR UNKNOWN INDICATION
     Dosage: UNIT DOSE: 50 MG
     Route: 048
     Dates: start: 20081112

REACTIONS (1)
  - Axonal neuropathy [Recovering/Resolving]
